FAERS Safety Report 12783939 (Version 1)
Quarter: 2016Q3

REPORT INFORMATION
  Report Type: Spontaneous
  Country: US (occurrence: US)
  Receive Date: 20160927
  Receipt Date: 20160927
  Transmission Date: 20161109
  Serious: No
  Sender: FDA-Public Use
  Company Number: US-009507513-1606USA001408

PATIENT
  Sex: Male

DRUGS (1)
  1. DULERA [Suspect]
     Active Substance: FORMOTEROL FUMARATE DIHYDRATE\MOMETASONE FUROATE
     Indication: ASTHMA
     Dosage: 100/5MCG 2 PUFFS TWICE DAILY
     Route: 055
     Dates: start: 20160214

REACTIONS (4)
  - No adverse event [Unknown]
  - Product container issue [Unknown]
  - Drug dose omission [Unknown]
  - Wheezing [Not Recovered/Not Resolved]
